FAERS Safety Report 16444668 (Version 1)
Quarter: 2019Q3

REPORT INFORMATION
  Report Type: Spontaneous
  Country: US (occurrence: US)
  Receive Date: 20190617
  Receipt Date: 20190617
  Transmission Date: 20191004
  Serious: Yes (Other)
  Sender: FDA-Public Use
  Company Number: None

PATIENT
  Age: 47 Year
  Sex: Female
  Weight: 99 kg

DRUGS (13)
  1. MIRAPEX [Concomitant]
     Active Substance: PRAMIPEXOLE DIHYDROCHLORIDE
  2. LISINOPRIL. [Concomitant]
     Active Substance: LISINOPRIL
  3. CELEXECOB [Concomitant]
  4. VITAMIN B12 [Concomitant]
     Active Substance: CYANOCOBALAMIN
  5. PROBIOTICS [Concomitant]
     Active Substance: PROBIOTICS NOS
  6. CYMBALTA [Suspect]
     Active Substance: DULOXETINE HYDROCHLORIDE
     Indication: FIBROMYALGIA
     Dosage: ?          QUANTITY:1 CAPSULE(S);?
     Route: 048
  7. FLAXSEED [Concomitant]
     Active Substance: FLAX SEED
  8. CALCIUM D [Concomitant]
     Active Substance: CALCIUM\VITAMIN D
  9. CBD OIL [Concomitant]
     Active Substance: CANNABIDIOL\HERBALS
  10. DULOXETINE. [Concomitant]
     Active Substance: DULOXETINE
  11. ZYRTEC [Concomitant]
     Active Substance: CETIRIZINE HYDROCHLORIDE
  12. FAMTODINE [Concomitant]
  13. MAGNESIUM [Concomitant]
     Active Substance: MAGNESIUM

REACTIONS (8)
  - Swelling [None]
  - Therapeutic product effect decreased [None]
  - Weight increased [None]
  - Judgement impaired [None]
  - Emotional poverty [None]
  - Fatigue [None]
  - Drug withdrawal syndrome [None]
  - Bone pain [None]
